FAERS Safety Report 9115033 (Version 1)
Quarter: 2013Q1

REPORT INFORMATION
  Report Type: Spontaneous
  Country: DK (occurrence: None)
  Receive Date: 20130125
  Receipt Date: 20130125
  Transmission Date: 20140127
  Serious: Yes (Life-Threatening)
  Sender: FDA-Public Use
  Company Number: 2013MA000594

PATIENT
  Age: 69 Year
  Sex: Male

DRUGS (4)
  1. BUTALBITAL, ASPIRIN (ACETYLSALICYLIC ACID) AND CAFFEINE TABLETS USP 50MG/325MG/40MG (AELLC) (BUTALBITAL, ASPIRIN AND CAFFEINE) [Suspect]
     Indication: ACUTE MYOCARDIAL INFARCTION
  2. PLAVIX (CLOPIDOGREL SULFATE) [Suspect]
     Indication: ACUTE MYOCARDIAL INFARCTION
  3. CLEXANE [Suspect]
     Indication: ACUTE MYOCARDIAL INFARCTION
  4. METALYSE [Suspect]
     Indication: ACUTE MYOCARDIAL INFARCTION

REACTIONS (1)
  - Intraventricular haemorrhage [None]
